FAERS Safety Report 5623918-0 (Version None)
Quarter: 2008Q1

REPORT INFORMATION
  Report Type: 
  Country: None (occurrence: None)
  Receive Date: 20080207
  Receipt Date: 20080123
  Transmission Date: 20080703
  Serious: Yes (Death, Hospitalization)
  Sender: FDA-Public Use
  Company Number: E3810-01524-SPO-JP

PATIENT
  Age: 83 Year
  Sex: Male
  Weight: 43 kg

DRUGS (12)
  1. RABEPRAZOLE SODIUM [Suspect]
     Indication: UPPER GASTROINTESTINAL HAEMORRHAGE
     Dosage: 10 MG, 1 IN 1 D, ORAL
     Route: 048
     Dates: start: 20071114, end: 20071210
  2. ISONIAZID [Suspect]
     Indication: TUBERCULOUS PLEURISY
     Dosage: 400 MG, 1 IN 1 D, ORAL
     Route: 048
     Dates: start: 20070906, end: 20071211
  3. RIFADIN [Suspect]
     Indication: TUBERCULOUS PLEURISY
     Dosage: 1 IN 1 D, ORAL
     Route: 048
     Dates: start: 20071106
  4. ETHAMBUTOL HYDROCHLORIDE [Suspect]
     Indication: TUBERCULOUS PLEURISY
     Dosage: 500 MG, 2 IN 1 D, ORAL
     Route: 048
     Dates: start: 20070906
  5. MUCOSTA (REBAMIPIDE) [Concomitant]
  6. MALFA (ALUDROX) [Concomitant]
  7. THROMBIN LOCAL SOLUTION [Concomitant]
  8. ADEROXAL (PYRIDOXAL PHOSPHATE) [Concomitant]
  9. LASIX [Concomitant]
  10. DILTIAZEM HYDROCHLORIDE [Concomitant]
  11. PYRAZINAMIDE [Concomitant]
  12. PREDNISOLONE [Concomitant]

REACTIONS (8)
  - ACUTE RESPIRATORY FAILURE [None]
  - DEPRESSED LEVEL OF CONSCIOUSNESS [None]
  - DIABETIC COMA [None]
  - HAEMATEMESIS [None]
  - HYPERGLYCAEMIA [None]
  - INTERSTITIAL LUNG DISEASE [None]
  - SHOCK [None]
  - TUBERCULOUS PLEURISY [None]
